FAERS Safety Report 25993444 (Version 1)
Quarter: 2025Q4

REPORT INFORMATION
  Report Type: Spontaneous
  Country: CH (occurrence: CH)
  Receive Date: 20251104
  Receipt Date: 20251104
  Transmission Date: 20260117
  Serious: Yes (Hospitalization)
  Sender: CHEPLAPHARM
  Company Number: None

PATIENT
  Age: 51 Year
  Sex: Male

DRUGS (6)
  1. CLONAZEPAM [Interacting]
     Active Substance: CLONAZEPAM
     Indication: Pain
     Dates: start: 20250924, end: 20250924
  2. CLONAZEPAM [Interacting]
     Active Substance: CLONAZEPAM
     Indication: Pain
     Dosage: AS NECESSARY
     Dates: end: 20250923
  3. MORPHINE HYDROCHLORIDE [Interacting]
     Active Substance: MORPHINE HYDROCHLORIDE
     Indication: Pain
     Route: 048
     Dates: start: 20250924, end: 20250924
  4. MORPHINE HYDROCHLORIDE [Interacting]
     Active Substance: MORPHINE HYDROCHLORIDE
     Indication: Pain
     Dosage: IF CLONAZEPAM IS INSUFFICIENT 10 DROPS (5 MG) AT A TIME.
     Route: 048
     Dates: end: 20250923
  5. FLUMAZENIL [Concomitant]
     Active Substance: FLUMAZENIL
     Dates: start: 20250925
  6. NALOXONE [Concomitant]
     Active Substance: NALOXONE

REACTIONS (9)
  - Respiratory acidosis [Recovering/Resolving]
  - Acute kidney injury [Recovering/Resolving]
  - Somnolence [Recovering/Resolving]
  - Bradykinesia [Recovering/Resolving]
  - Oxygen saturation decreased [Recovering/Resolving]
  - Altered state of consciousness [Recovering/Resolving]
  - Drug interaction [Recovered/Resolved]
  - Speech disorder [Unknown]
  - Off label use [Recovered/Resolved]

NARRATIVE: CASE EVENT DATE: 20250924
